FAERS Safety Report 15893808 (Version 1)
Quarter: 2019Q1

REPORT INFORMATION
  Report Type: Spontaneous
  Country: US (occurrence: US)
  Receive Date: 20190131
  Receipt Date: 20190131
  Transmission Date: 20190417
  Serious: No
  Sender: FDA-Public Use
  Company Number: US-AUROBINDO-AUR-APU-2018-052840

PATIENT

DRUGS (1)
  1. ROCURONIUM BROMIDE 100MG/10ML [Suspect]
     Active Substance: ROCURONIUM BROMIDE
     Indication: PRODUCT USED FOR UNKNOWN INDICATION
     Dosage: UNK
     Route: 065

REACTIONS (4)
  - Drug interaction [None]
  - Drug ineffective [Unknown]
  - Wrong technique in product usage process [None]
  - Product measured potency issue [None]
